FAERS Safety Report 7059644-3 (Version None)
Quarter: 2010Q4

REPORT INFORMATION
  Report Type: 
  Country: None (occurrence: None)
  Receive Date: 20101025
  Receipt Date: 20101012
  Transmission Date: 20110411
  Serious: Yes (Hospitalization)
  Sender: FDA-Public Use
  Company Number: US-ELI_LILLY_AND_COMPANY-US201010003019

PATIENT
  Age: 17 Year
  Sex: Female

DRUGS (2)
  1. CYMBALTA [Suspect]
     Indication: CHRONIC FATIGUE SYNDROME
     Dosage: 20 MG, DAILY (1/D)
     Dates: start: 20100704
  2. LAMICTAL [Concomitant]
     Dates: start: 20070101

REACTIONS (19)
  - ABDOMINAL DISCOMFORT [None]
  - ABNORMAL DREAMS [None]
  - APATHY [None]
  - DECREASED APPETITE [None]
  - DEPRESSION [None]
  - DIARRHOEA [None]
  - DIZZINESS [None]
  - DRUG INEFFECTIVE [None]
  - DRUG WITHDRAWAL SYNDROME [None]
  - EATING DISORDER [None]
  - FEELING ABNORMAL [None]
  - MOOD ALTERED [None]
  - NAUSEA [None]
  - NEPHROLITHIASIS [None]
  - OFF LABEL USE [None]
  - PAIN [None]
  - POOR QUALITY SLEEP [None]
  - VISION BLURRED [None]
  - WEIGHT DECREASED [None]
